FAERS Safety Report 25046295 (Version 2)
Quarter: 2025Q1

REPORT INFORMATION
  Report Type: Spontaneous
  Country: FR (occurrence: FR)
  Receive Date: 20250306
  Receipt Date: 20250319
  Transmission Date: 20250409
  Serious: Yes (Hospitalization)
  Sender: TEVA
  Company Number: FR-TEVA-VS-3304051

PATIENT
  Age: 40 Year
  Sex: Female

DRUGS (4)
  1. URSODIOL [Suspect]
     Active Substance: URSODIOL
     Indication: Liver disorder
     Route: 048
  2. DEFEROXAMINE [Suspect]
     Active Substance: DEFEROXAMINE MESYLATE
     Indication: Chelation therapy
     Dosage: 20 TO 60 MG/KG;  FOR 14?DAYS
     Route: 042
  3. HYDROXYUREA [Suspect]
     Active Substance: HYDROXYUREA
     Indication: Porphyria non-acute
     Route: 048
  4. TRANEXAMIC ACID [Suspect]
     Active Substance: TRANEXAMIC ACID
     Indication: Epistaxis
     Route: 048
     Dates: start: 201911

REACTIONS (2)
  - Drug ineffective [Unknown]
  - Thrombocytopenia [Unknown]

NARRATIVE: CASE EVENT DATE: 20210201
